FAERS Safety Report 21233460 (Version 2)
Quarter: 2022Q3

REPORT INFORMATION
  Report Type: Report from Study
  Country: IL (occurrence: IL)
  Receive Date: 20220819
  Receipt Date: 20220909
  Transmission Date: 20221027
  Serious: Yes (Hospitalization, Other)
  Sender: FDA-Public Use
  Company Number: IL-ABBVIE-21K-082-3890222-00

PATIENT
  Sex: Male

DRUGS (4)
  1. HUMIRA [Suspect]
     Active Substance: ADALIMUMAB
     Indication: Crohn^s disease
     Dosage: LOADING DOSE 160-80-40
     Route: 058
     Dates: start: 20210228, end: 20210228
  2. HUMIRA [Suspect]
     Active Substance: ADALIMUMAB
     Dosage: PHYSICIAN GUIDED TO DO LOADING DOSE AGAIN
     Route: 058
     Dates: start: 202104, end: 202104
  3. HUMIRA [Suspect]
     Active Substance: ADALIMUMAB
     Route: 058
     Dates: start: 202105, end: 202105
  4. HUMIRA [Suspect]
     Active Substance: ADALIMUMAB
     Route: 058
     Dates: start: 20210526

REACTIONS (7)
  - Drug level decreased [Unknown]
  - Haematochezia [Unknown]
  - Drug level decreased [Unknown]
  - Device issue [Unknown]
  - Injection site haematoma [Not Recovered/Not Resolved]
  - Crohn^s disease [Unknown]
  - Drug ineffective [Unknown]

NARRATIVE: CASE EVENT DATE: 20210101
